FAERS Safety Report 4697317-2 (Version None)
Quarter: 2005Q2

REPORT INFORMATION
  Report Type: 
  Country: None (occurrence: None)
  Receive Date: 20050620
  Receipt Date: 20050602
  Transmission Date: 20051028
  Serious: Yes (Other)
  Sender: FDA-Public Use
  Company Number: 2005PL000041

PATIENT
  Age: 18 Year
  Sex: Male

DRUGS (5)
  1. AZATHIOPRINE [Suspect]
     Indication: RENAL TRANSPLANT
     Dosage: 1 IU/KG;QW;
  2. RECOMBINANT HUMAN GROWTH HORMONE (BEING QUERIED) [Suspect]
     Indication: GROWTH HORMONE DEFICIENCY
  3. ORTHOCLONE OKT3 [Concomitant]
  4. CYCLOSPORINE [Concomitant]
  5. STEROID [Concomitant]

REACTIONS (1)
  - CHRONIC MYELOID LEUKAEMIA [None]
